FAERS Safety Report 21283131 (Version 1)
Quarter: 2022Q3

REPORT INFORMATION
  Report Type: Spontaneous
  Country: CN (occurrence: None)
  Receive Date: 20220901
  Receipt Date: 20220901
  Transmission Date: 20221027
  Serious: Yes (Hospitalization)
  Sender: FDA-Public Use
  Company Number: CN-Merck Healthcare KGaA-9346929

PATIENT
  Age: 36 Year
  Sex: Female
  Weight: 62 kg

DRUGS (7)
  1. LUVERIS [Suspect]
     Active Substance: LUTROPIN ALFA
     Indication: Infertility female
     Route: 058
     Dates: start: 20220613, end: 20220622
  2. GONAL-F [Suspect]
     Active Substance: FOLLITROPIN
     Indication: Infertility female
     Route: 058
     Dates: start: 20220613, end: 20220619
  3. OVIDREL [Suspect]
     Active Substance: CHORIOGONADOTROPIN ALFA
     Indication: Infertility female
     Route: 058
     Dates: start: 20220622, end: 20220622
  4. CRINONE [Suspect]
     Active Substance: PROGESTERONE
     Indication: Oocyte harvest
     Route: 067
     Dates: start: 20220624, end: 20220712
  5. DUPHASTON [Suspect]
     Active Substance: DYDROGESTERONE
     Indication: Oocyte harvest
     Route: 048
     Dates: start: 20220624, end: 20220712
  6. MENOPUR [Suspect]
     Active Substance: FOLLITROPIN\LUTEINIZING HORMONE
     Indication: Infertility female
     Route: 058
     Dates: start: 20220620, end: 20220622
  7. FOLLITROPIN ALFA [Suspect]
     Active Substance: FOLLITROPIN ALFA
     Indication: Infertility female
     Route: 058
     Dates: start: 20220621, end: 20220622

REACTIONS (1)
  - Ovarian hyperstimulation syndrome [Recovering/Resolving]

NARRATIVE: CASE EVENT DATE: 20220713
